FAERS Safety Report 25451667 (Version 1)
Quarter: 2025Q2

REPORT INFORMATION
  Report Type: Spontaneous
  Country: US (occurrence: US)
  Receive Date: 20250618
  Receipt Date: 20250618
  Transmission Date: 20250717
  Serious: No
  Sender: BRISTOL-MYERS SQUIBB COMPANY
  Company Number: US-BRISTOL-MYERS SQUIBB COMPANY-2025-085232

PATIENT
  Age: 58 Year
  Sex: Female
  Weight: 54.43 kg

DRUGS (3)
  1. AUGTYRO [Suspect]
     Active Substance: REPOTRECTINIB
     Indication: Non-small cell lung cancer
     Dosage: DOSE : 1 CAPSULE;     FREQ : DAILY FOR (14) DAYS THEN TWICE DAILY
     Route: 048
     Dates: start: 20250609
  2. AUGTYRO [Suspect]
     Active Substance: REPOTRECTINIB
     Route: 048
  3. TAGRISSO [Concomitant]
     Active Substance: OSIMERTINIB
     Indication: Product used for unknown indication
     Dosage: DAILY

REACTIONS (2)
  - Product size issue [Unknown]
  - Dysphagia [Unknown]

NARRATIVE: CASE EVENT DATE: 20250609
